FAERS Safety Report 6938673-1 (Version None)
Quarter: 2010Q3

REPORT INFORMATION
  Report Type: 
  Country: None (occurrence: None)
  Receive Date: 20100824
  Receipt Date: 20100810
  Transmission Date: 20110219
  Serious: Yes (Other)
  Sender: FDA-Public Use
  Company Number: PHHY2010US53354

PATIENT
  Sex: Female

DRUGS (4)
  1. DIOVAN [Suspect]
     Dosage: 80 MG
  2. DIOVAN HCT [Suspect]
     Dosage: 320/12.5 MG
  3. LIPITOR [Concomitant]
  4. ASPIRIN [Concomitant]

REACTIONS (8)
  - ABDOMINAL INFECTION [None]
  - ASTHENIA [None]
  - CHOLELITHIASIS [None]
  - DIAPHRAGMALGIA [None]
  - DIARRHOEA [None]
  - DIZZINESS [None]
  - HYPERTENSION [None]
  - VISUAL IMPAIRMENT [None]
